FAERS Safety Report 4302252-5 (Version None)
Quarter: 2004Q1

REPORT INFORMATION
  Report Type: 
  Country: None (occurrence: None)
  Receive Date: 20040126
  Receipt Date: 20031022
  Transmission Date: 20041129
  Serious: No
  Sender: FDA-Public Use
  Company Number: USA031049413

PATIENT
  Age: 7 Year
  Sex: Male
  Weight: 34 kg

DRUGS (2)
  1. STRATTERA [Suspect]
     Indication: ATTENTION DEFICIT/HYPERACTIVITY DISORDER
     Dosage: 10 MG/ IN THE EVENING
     Dates: start: 20031007
  2. MULTI-VITAMIN [Concomitant]

REACTIONS (10)
  - ABNORMAL BEHAVIOUR [None]
  - DIZZINESS [None]
  - DRUG INEFFECTIVE [None]
  - EAR INFECTION [None]
  - FATIGUE [None]
  - HEADACHE [None]
  - HEART RATE INCREASED [None]
  - PALLOR [None]
  - SOMNOLENCE [None]
  - VOMITING [None]
